FAERS Safety Report 7203596-X (Version None)
Quarter: 2010Q4

REPORT INFORMATION
  Report Type: 
  Country: None (occurrence: None)
  Receive Date: 20101228
  Receipt Date: 20101228
  Transmission Date: 20110411
  Serious: Yes (Life-Threatening)
  Sender: FDA-Public Use
  Company Number: None

PATIENT
  Age: 57 Year
  Sex: Female
  Weight: 79.3 kg

DRUGS (9)
  1. FANAPT [Suspect]
     Indication: SCHIZOPHRENIA
     Dosage: 6MG BID PO
     Route: 048
     Dates: start: 20101217, end: 20101226
  2. VICODIN [Concomitant]
  3. FIORICET [Concomitant]
  4. SOMA [Concomitant]
  5. PRISTIQ [Concomitant]
  6. BENADRYL [Concomitant]
  7. ESTRADIOL [Concomitant]
  8. VISTARIL [Concomitant]
  9. LISINOPRIL [Concomitant]

REACTIONS (3)
  - COMA [None]
  - HYPERGLYCAEMIA [None]
  - PANCREATITIS [None]
